FAERS Safety Report 17084076 (Version 1)
Quarter: 2019Q4

REPORT INFORMATION
  Report Type: Other
  Country: US (occurrence: KR)
  Receive Date: 20191127
  Receipt Date: 20191127
  Transmission Date: 20200122
  Serious: Yes (Other)
  Sender: FDA-Public Use
  Company Number: KR-BRECKENRIDGE PHARMACEUTICAL, INC.-2077267

PATIENT
  Age: 9 Year
  Sex: Female

DRUGS (2)
  1. FORMOTEROL [Concomitant]
     Active Substance: FORMOTEROL
  2. MEFENAMIC ACID. [Suspect]
     Active Substance: MEFENAMIC ACID

REACTIONS (2)
  - Pseudomyopia [None]
  - Angle closure glaucoma [None]
